FAERS Safety Report 10363791 (Version 1)
Quarter: 2014Q3

REPORT INFORMATION
  Report Type: Spontaneous
  Country: NL (occurrence: NL)
  Receive Date: 20140805
  Receipt Date: 20140805
  Transmission Date: 20150326
  Serious: Yes (Other)
  Sender: FDA-Public Use
  Company Number: NL-B.I. PHARMACEUTICALS,INC./RIDGEFIELD-2014-BI-35595YA

PATIENT
  Age: 69 Year
  Sex: Male
  Weight: 93 kg

DRUGS (2)
  1. TAMSULOSIN [Suspect]
     Active Substance: TAMSULOSIN
     Indication: PROSTATIC DISORDER
     Dosage: 0.4 MG
     Route: 048
     Dates: start: 20140522, end: 20140603
  2. NON-SPECIFIED DIABETES [Concomitant]
     Indication: DIABETES MELLITUS
     Route: 065
     Dates: start: 19940101

REACTIONS (2)
  - Dizziness postural [Unknown]
  - Visual impairment [Unknown]

NARRATIVE: CASE EVENT DATE: 20140522
